FAERS Safety Report 17814881 (Version 1)
Quarter: 2020Q2

REPORT INFORMATION
  Report Type: Spontaneous
  Country: US (occurrence: US)
  Receive Date: 20200522
  Receipt Date: 20200522
  Transmission Date: 20200714
  Serious: No
  Sender: FDA-Public Use
  Company Number: US-TEVA-2017-US-828927

PATIENT
  Age: 67 Year
  Sex: Male

DRUGS (1)
  1. TESTOSTERONE. [Suspect]
     Active Substance: TESTOSTERONE
     Dosage: TWO WEEKS APPLYING TWO PUMPS IN THE MORNING AND TWO PUMPS IN THE EVENING TO HIS SHOULDERS

REACTIONS (1)
  - Drug ineffective [Unknown]
